FAERS Safety Report 5032115-1 (Version None)
Quarter: 2006Q2

REPORT INFORMATION
  Report Type: 
  Country: None (occurrence: None)
  Receive Date: 20060619
  Receipt Date: 20060605
  Transmission Date: 20061013
  Serious: Yes (Other)
  Sender: FDA-Public Use
  Company Number: 163-20785-06060111

PATIENT

DRUGS (3)
  1. THALIDOMIDE (THALIDOMIDE)(CAPSULES) [Suspect]
     Indication: RENAL CANCER METASTATIC
     Dosage: 200 TO 400 MG, AT BEDTIME, ORAL
     Route: 048
  2. INTERFERON (INTERFERON) (INJECTION) [Suspect]
     Indication: RENAL CANCER METASTATIC
     Dosage: 1 MIU, DAILY, SUBCUTANEOUS
     Route: 058
  3. CAPECITABINE (CAPECITABINE) [Suspect]
     Indication: RENAL CANCER METASTATIC
     Dosage: 1,900/M2 PER DAY IN 2 DAILY DOSES, 2 WEEKS ON AND 1 WEEK OFF, ORAL
     Route: 048

REACTIONS (14)
  - ANAEMIA [None]
  - CHEST PAIN [None]
  - DEEP VEIN THROMBOSIS [None]
  - DRUG TOXICITY [None]
  - DYSPNOEA [None]
  - EPISTAXIS [None]
  - EXFOLIATIVE RASH [None]
  - FATIGUE [None]
  - HAEMOPTYSIS [None]
  - METABOLIC ACIDOSIS [None]
  - PAIN [None]
  - PALMAR-PLANTAR ERYTHRODYSAESTHESIA SYNDROME [None]
  - PARAESTHESIA [None]
  - TREMOR [None]
